FAERS Safety Report 5130434-1 (Version None)
Quarter: 2006Q4

REPORT INFORMATION
  Report Type: 
  Country: None (occurrence: None)
  Receive Date: 20061019
  Receipt Date: 20061006
  Transmission Date: 20070319
  Serious: Yes (Other)
  Sender: FDA-Public Use
  Company Number: PHBS2006BR15762

PATIENT
  Age: 88 Year
  Sex: Female

DRUGS (5)
  1. EXELON [Suspect]
     Indication: DEMENTIA ALZHEIMER'S TYPE
     Dosage: 1.5 MG, BID
  2. EXELON [Suspect]
     Dosage: 3 MG, BID
     Route: 048
  3. EXELON [Suspect]
     Dosage: 1.5 MG, BID
     Route: 048
  4. BETAHISTINE [Concomitant]
     Dosage: 8 MG, BID
     Route: 048
  5. ANTIHYPERTENSIVES [Concomitant]

REACTIONS (5)
  - DISTURBANCE IN ATTENTION [None]
  - HYPERTENSION [None]
  - LABYRINTHITIS [None]
  - MOOD ALTERED [None]
  - STOMACH DISCOMFORT [None]
